FAERS Safety Report 17782408 (Version 3)
Quarter: 2020Q2

REPORT INFORMATION
  Report Type: Spontaneous
  Country: ES (occurrence: ES)
  Receive Date: 20200514
  Receipt Date: 20200522
  Transmission Date: 20200714
  Serious: Yes (Life-Threatening, Hospitalization)
  Sender: FDA-Public Use
  Company Number: ES-ACCORD-181852

PATIENT
  Age: 26 Year
  Sex: Male

DRUGS (20)
  1. MAGNESIUM CHLORIDE ANHYDROUS [Concomitant]
     Active Substance: MAGNESIUM CHLORIDE ANHYDROUS
     Indication: RENAL TRANSPLANT
     Dosage: 53 MG COATED TABLETS
     Route: 048
     Dates: end: 20200417
  2. PARACETAMOL [Concomitant]
     Active Substance: ACETAMINOPHEN
     Route: 048
     Dates: start: 20200415, end: 20200417
  3. FAMOTIDINE. [Concomitant]
     Active Substance: FAMOTIDINE
     Dosage: 20 MG TABLET
     Route: 048
  4. CEFTRIAXONE. [Concomitant]
     Active Substance: CEFTRIAXONE
     Dosage: 2,000 MG INJECTION IV
     Route: 042
     Dates: start: 20200412, end: 20200416
  5. CEFIXIME/CEFIXIME TRIHYDRATE [Concomitant]
     Active Substance: CEFIXIME
     Indication: URINARY TRACT INFECTION
     Route: 048
     Dates: start: 20200416, end: 20200417
  6. PREDNISONE. [Concomitant]
     Active Substance: PREDNISONE
     Indication: RENAL TRANSPLANT
     Route: 048
     Dates: start: 20200415
  7. CARVEDILOL/CARVEDILOL HYDROCHLODRIDE [Concomitant]
     Active Substance: CARVEDILOL HYDROCHLORIDE
     Dosage: 25 MG TABLET
     Route: 048
  8. TACROLIMUS. [Concomitant]
     Active Substance: TACROLIMUS
     Indication: RENAL TRANSPLANT
     Route: 048
     Dates: start: 20200412, end: 20200413
  9. MYFORTIC [Concomitant]
     Active Substance: MYCOPHENOLATE SODIUM
     Indication: RENAL TRANSPLANT
     Dosage: 360 MG GASTRO-RESISTANT TABLETS
     Route: 048
     Dates: start: 2014, end: 20200412
  10. TACROLIMUS. [Concomitant]
     Active Substance: TACROLIMUS
     Indication: RENAL TRANSPLANT
     Route: 048
     Dates: start: 20200416
  11. DOXAZOSIN [Concomitant]
     Active Substance: DOXAZOSIN MESYLATE
     Route: 048
     Dates: start: 20200417
  12. ZEMPLAR [Concomitant]
     Active Substance: PARICALCITOL
     Dosage: 1 MICROGRAM SOFT CAPSULES
     Route: 048
  13. ENOXAPARIN [Concomitant]
     Active Substance: ENOXAPARIN
     Indication: PROPHYLAXIS
     Dosage: 20 MG (2,000 IU) INJECTION 0.2 ML
     Route: 058
     Dates: start: 20200412, end: 20200417
  14. TACROLIMUS. [Concomitant]
     Active Substance: TACROLIMUS
     Indication: RENAL TRANSPLANT
     Route: 048
     Dates: start: 2014, end: 20200411
  15. PREDNISONE. [Concomitant]
     Active Substance: PREDNISONE
     Indication: RENAL TRANSPLANT
     Route: 048
     Dates: start: 2014, end: 20200411
  16. HYDROXYCHLOROQUINE [Suspect]
     Active Substance: HYDROXYCHLOROQUINE
     Indication: CORONAVIRUS INFECTION
     Dosage: 400 MG DAY
     Route: 048
     Dates: start: 20200413, end: 20200417
  17. ALLOPURINOL. [Concomitant]
     Active Substance: ALLOPURINOL
     Dosage: 100 MG TABLET
     Route: 048
  18. FOSRENOL [Concomitant]
     Active Substance: LANTHANUM CARBONATE
     Indication: RENAL TRANSPLANT
     Route: 048
     Dates: start: 20200417
  19. METAMIZOLE SODIUM [Concomitant]
     Active Substance: METAMIZOLE SODIUM
     Dosage: 575 MG CAPSULE
     Route: 048
     Dates: start: 20200413, end: 20200417
  20. PREDNISONE. [Concomitant]
     Active Substance: PREDNISONE
     Indication: RENAL TRANSPLANT
     Route: 048
     Dates: start: 20200412, end: 20200413

REACTIONS (3)
  - Off label use [Unknown]
  - Suicide attempt [Unknown]
  - Acute psychosis [Unknown]

NARRATIVE: CASE EVENT DATE: 20200417
